FAERS Safety Report 7476119-8 (Version None)
Quarter: 2011Q2

REPORT INFORMATION
  Report Type: 
  Country: None (occurrence: None)
  Receive Date: 20110505
  Receipt Date: 20110421
  Transmission Date: 20111010
  Serious: Yes (Other)
  Sender: FDA-Public Use
  Company Number: 2011AP000804

PATIENT
  Age: 10 Year
  Sex: Female

DRUGS (2)
  1. LAMOTRIGINE [Suspect]
     Indication: GRAND MAL CONVULSION
     Dosage: 22 MG/KG; QD;, 25 MG/KG; QD;, 20 MG/KG; QD;
  2. CLONAZEPAM [Concomitant]

REACTIONS (7)
  - IRRITABILITY [None]
  - OCULOGYRIC CRISIS [None]
  - TREMOR [None]
  - TOXICITY TO VARIOUS AGENTS [None]
  - NO THERAPEUTIC RESPONSE [None]
  - CEREBRAL ATROPHY [None]
  - CEREBELLAR ATROPHY [None]
